FAERS Safety Report 6271883-8 (Version None)
Quarter: 2009Q3

REPORT INFORMATION
  Report Type: 
  Country: None (occurrence: None)
  Receive Date: 20090717
  Receipt Date: 20090715
  Transmission Date: 20100115
  Serious: Yes (Death)
  Sender: FDA-Public Use
  Company Number: PHHY2009BR29207

PATIENT
  Sex: Female

DRUGS (2)
  1. EXELON [Suspect]
     Indication: DEMENTIA ALZHEIMER'S TYPE
     Dosage: 2MG/120ML AT 12 ML PER DAY
  2. EXFORGE [Suspect]
     Dosage: 80/5 MG

REACTIONS (1)
  - RESPIRATORY FAILURE [None]
